FAERS Safety Report 8478014-4 (Version None)
Quarter: 2012Q2

REPORT INFORMATION
  Report Type: 
  Country: None (occurrence: None)
  Receive Date: 20120629
  Receipt Date: 20120625
  Transmission Date: 20120825
  Serious: Yes (Life-Threatening, Hospitalization, Other)
  Sender: FDA-Public Use
  Company Number: PL-ASTRAZENECA-2012SE42662

PATIENT
  Age: 24452 Day
  Sex: Female

DRUGS (13)
  1. PRAMOLAN [Concomitant]
     Indication: DEPRESSION
     Route: 048
     Dates: start: 20110806
  2. CALPEROS [Concomitant]
     Route: 048
     Dates: start: 20111117
  3. LOPERAMIDE [Concomitant]
     Indication: DIARRHOEA
     Route: 048
  4. EUTHYROX N [Concomitant]
     Indication: HYPOTHYROIDISM
     Route: 048
     Dates: end: 20120516
  5. PANTOPRAZOLE [Concomitant]
     Indication: GASTRITIS
     Route: 048
     Dates: start: 20120214
  6. ALFADIOL [Concomitant]
     Indication: HYPOPARATHYROIDISM
     Route: 048
     Dates: end: 20120612
  7. MAGNE B6 [Concomitant]
     Indication: MINERAL SUPPLEMENTATION
  8. PAMIDRONATE DISODIUM [Suspect]
     Indication: METASTASES TO SPINE
     Dosage: AS REQUIRED
     Route: 042
     Dates: start: 20120401, end: 20120612
  9. VANDETANIB [Suspect]
     Indication: THYROID CANCER
     Route: 048
     Dates: start: 20110816
  10. EUTHYROX N [Concomitant]
     Route: 048
     Dates: start: 20120517
  11. VANDETANIB [Suspect]
     Route: 048
     Dates: start: 20110903
  12. CALPEROS [Concomitant]
     Indication: MINERAL SUPPLEMENTATION
     Route: 048
     Dates: start: 20110903, end: 20111116
  13. POTASSIUM CHLORIDE [Concomitant]
     Indication: MINERAL SUPPLEMENTATION
     Route: 048
     Dates: start: 20110903

REACTIONS (2)
  - HYPERCALCAEMIA [None]
  - RENAL FAILURE [None]
